FAERS Safety Report 16248689 (Version 1)
Quarter: 2019Q2

REPORT INFORMATION
  Report Type: Spontaneous
  Country: GB (occurrence: GB)
  Receive Date: 20190429
  Receipt Date: 20190429
  Transmission Date: 20190711
  Serious: Yes (Other)
  Sender: FDA-Public Use
  Company Number: GB-ACCORD-124481

PATIENT
  Age: 27 Year
  Sex: Female
  Weight: 56.63 kg

DRUGS (1)
  1. SERTRALINE [Suspect]
     Active Substance: SERTRALINE HYDROCHLORIDE
     Indication: DEPRESSION
     Route: 048
     Dates: start: 20181217, end: 20190201

REACTIONS (15)
  - Muscle twitching [Recovered/Resolved]
  - Abnormal dreams [Not Recovered/Not Resolved]
  - Dry skin [Recovering/Resolving]
  - Muscle tightness [Recovered/Resolved]
  - Decreased appetite [Recovered/Resolved with Sequelae]
  - Bruxism [Recovered/Resolved]
  - Disturbance in attention [Recovering/Resolving]
  - Depressed mood [Recovered/Resolved]
  - Initial insomnia [Recovered/Resolved with Sequelae]
  - Dizziness [Recovering/Resolving]
  - Dizziness postural [Recovering/Resolving]
  - Nausea [Recovered/Resolved]
  - Somnolence [Not Recovered/Not Resolved]
  - Headache [Recovered/Resolved]
  - Drug ineffective [Unknown]

NARRATIVE: CASE EVENT DATE: 20190128
